FAERS Safety Report 4686263-6 (Version None)
Quarter: 2005Q2

REPORT INFORMATION
  Report Type: 
  Country: None (occurrence: None)
  Receive Date: 20050609
  Receipt Date: 20050527
  Transmission Date: 20051028
  Serious: Yes (Other)
  Sender: FDA-Public Use
  Company Number: FR-GLAXOSMITHKLINE-B0383170A

PATIENT
  Age: 56 Year
  Sex: Male

DRUGS (2)
  1. ONDANSETRON [Suspect]
     Route: 065
  2. TAXOTERE [Suspect]
     Indication: GASTROINTESTINAL CARCINOMA
     Route: 065

REACTIONS (1)
  - MYOCARDIAL INFARCTION [None]
